FAERS Safety Report 9538115 (Version 1)
Quarter: 2013Q3

REPORT INFORMATION
  Report Type: Spontaneous
  Country: US (occurrence: US)
  Receive Date: 20130920
  Receipt Date: 20130920
  Transmission Date: 20140515
  Serious: Yes (Other)
  Sender: FDA-Public Use
  Company Number: US-BIOGENIDEC-2013BI090614

PATIENT
  Age: 60 Year
  Sex: Female
  Weight: 57 kg

DRUGS (11)
  1. AVONEX [Suspect]
     Indication: MULTIPLE SCLEROSIS
     Route: 030
     Dates: start: 19990301
  2. AVONEX [Suspect]
     Indication: MULTIPLE SCLEROSIS
     Route: 030
     Dates: start: 20130813
  3. ASPIRIN [Concomitant]
     Route: 048
  4. OMEPRAZOLE [Concomitant]
     Route: 048
  5. ATORVASTATIN [Concomitant]
     Route: 048
  6. BACLOFEN [Concomitant]
     Route: 048
     Dates: start: 20130417, end: 20130821
  7. BACLOFEN [Concomitant]
     Route: 048
     Dates: start: 20130821, end: 20130826
  8. HYDROCODONE/ACETAMINOPEHN 5/325 [Concomitant]
     Route: 048
     Dates: start: 20100421
  9. ROPINIROLE [Concomitant]
     Route: 048
  10. TIZANIDINE [Concomitant]
     Route: 048
  11. HYDROCODONE/ACETAMINOPEHN 5/500 [Concomitant]
     Route: 048

REACTIONS (1)
  - Lymphoma [Not Recovered/Not Resolved]
